FAERS Safety Report 15401702 (Version 5)
Quarter: 2021Q2

REPORT INFORMATION
  Report Type: Spontaneous
  Country: US (occurrence: US)
  Receive Date: 20180919
  Receipt Date: 20210621
  Transmission Date: 20210716
  Serious: No
  Sender: FDA-Public Use
  Company Number: US-PFIZER INC-2018377278

PATIENT
  Age: 49 Year
  Sex: Female

DRUGS (8)
  1. GABAPENTIN. [Suspect]
     Active Substance: GABAPENTIN
     Dosage: UNK
  2. ATIVAN [Concomitant]
     Active Substance: LORAZEPAM
     Dosage: UNK
  3. LEVOTHYROXINE. [Concomitant]
     Active Substance: LEVOTHYROXINE
     Dosage: UNK
  4. PROCTOCORT [HYDROCORTISONE] [Concomitant]
     Dosage: UNK
  5. LOVENOX HP [Concomitant]
     Active Substance: ENOXAPARIN SODIUM
     Dosage: UNK
  6. WARFARIN [Concomitant]
     Active Substance: WARFARIN
     Dosage: UNK
  7. ANTIVERT [DIHYDROERGOCRISTINE;LOMIFYLLINE] [Concomitant]
     Active Substance: DIHYDROERGOCRISTINE\LOMIFYLLINE
  8. LYRICA [Concomitant]
     Active Substance: PREGABALIN
     Dosage: UNK

REACTIONS (3)
  - Drug hypersensitivity [Unknown]
  - Drug intolerance [Unknown]
  - Oedema [Unknown]
